FAERS Safety Report 21870720 (Version 1)
Quarter: 2023Q1

REPORT INFORMATION
  Report Type: Spontaneous
  Country: US (occurrence: US)
  Receive Date: 20230117
  Receipt Date: 20230117
  Transmission Date: 20230417
  Serious: Yes (Other)
  Sender: FDA-Public Use
  Company Number: US-SA-SAC20230116001230

PATIENT
  Age: 72 Year
  Sex: Male

DRUGS (1)
  1. DUPIXENT [Suspect]
     Active Substance: DUPILUMAB
     Dosage: 300 MG
     Route: 058

REACTIONS (4)
  - Pneumonia [Unknown]
  - Pulmonary congestion [Unknown]
  - COVID-19 [Recovered/Resolved]
  - Pulmonary pain [Unknown]

NARRATIVE: CASE EVENT DATE: 20221225
